FAERS Safety Report 20523854 (Version 1)
Quarter: 2022Q1

REPORT INFORMATION
  Report Type: Spontaneous
  Country: GB (occurrence: GB)
  Receive Date: 20220228
  Receipt Date: 20220228
  Transmission Date: 20220423
  Serious: Yes (Disabling)
  Sender: FDA-Public Use
  Company Number: None

PATIENT
  Age: 65 Year
  Sex: Female
  Weight: 95 kg

DRUGS (15)
  1. TRAMADOL [Suspect]
     Active Substance: TRAMADOL
     Dosage: TAKE ONE OR TWO CAPSULES UP TO FOUR TIMES A DAY...
     Dates: start: 20220120
  2. ADCAL [Concomitant]
     Dosage: 2 DOSAGE FORMS DAILY;
     Dates: start: 20170518
  3. ATORVASTATIN [Concomitant]
     Active Substance: ATORVASTATIN
     Dosage: 1 DOSAGE FORMS DAILY; AT NIGHT
     Dates: start: 20210903
  4. CINNARIZINE [Concomitant]
     Active Substance: CINNARIZINE
     Dosage: 3 DOSAGE FORMS DAILY;
     Dates: start: 20200824
  5. CLARITHROMYCIN [Concomitant]
     Active Substance: CLARITHROMYCIN
     Dosage: 2 DOSAGE FORMS DAILY;
     Dates: start: 20220124, end: 20220131
  6. COCODAMOL [Concomitant]
     Active Substance: ACETAMINOPHEN\CODEINE PHOSPHATE
     Dosage: TAKE 1 OR 2 4 TIMES/DAY
     Dates: start: 20211213, end: 20220112
  7. EZETIMIBE [Concomitant]
     Active Substance: EZETIMIBE
     Dosage: 1 DOSAGE FORMS DAILY;
     Dates: start: 20210922
  8. BECLOMETHASONE\FORMOTEROL [Concomitant]
     Active Substance: BECLOMETHASONE\FORMOTEROL
     Dosage: 1-2 PUFFS TWICE A DAY. RINSE MOUTH WITH WATER A...
     Dates: start: 20161101
  9. GABAPENTIN [Concomitant]
     Active Substance: GABAPENTIN
     Dosage: 5 DOSAGE FORMS DAILY; 1/2/2 DAILY AS DIRECTED
     Dates: start: 20210104
  10. HYALURONATE SODIUM [Concomitant]
     Active Substance: HYALURONATE SODIUM
     Dosage: USE AS DIRECTED EVERY 2 HOURS LEFT EYE
     Route: 047
     Dates: start: 20160516
  11. LEVOTHYROXINE [Concomitant]
     Active Substance: LEVOTHYROXINE
     Dosage: 1 DOSAGE FORMS DAILY; TAKE ONE A DAY WITH THE 25MCG TOTAL DOASE 125MCG
     Dates: start: 20210621
  12. METFORMIN [Concomitant]
     Active Substance: METFORMIN HYDROCHLORIDE
     Dosage: 1000 MILLIGRAM DAILY;
     Dates: start: 20191114
  13. ACETAMINOPHEN [Concomitant]
     Active Substance: ACETAMINOPHEN
     Dosage: TAKE 1 OR 2 TABLETS 4 TIMES/DAY WHEN REQUIRED F...
     Dates: start: 20220119
  14. RAMIPRIL [Concomitant]
     Active Substance: RAMIPRIL
     Dosage: 1 DOSAGE FORMS DAILY;
     Dates: start: 20180912
  15. CARBOMER [Concomitant]
     Active Substance: CARBOMER
     Dosage: ONE DROP AS NEEDED QDS LEFT EYE; UNIT DOSE: 1 GTT
     Route: 047
     Dates: start: 20160516

REACTIONS (5)
  - Nausea [Recovered/Resolved]
  - Diarrhoea [Recovered/Resolved]
  - Mood altered [Recovered/Resolved]
  - Euphoric mood [Recovered/Resolved]
  - Vomiting [Recovered/Resolved]

NARRATIVE: CASE EVENT DATE: 20220202
